FAERS Safety Report 25296614 (Version 2)
Quarter: 2025Q3

REPORT INFORMATION
  Report Type: Report from Study
  Country: CA (occurrence: CA)
  Receive Date: 20250511
  Receipt Date: 20250722
  Transmission Date: 20251021
  Serious: Yes (Hospitalization, Other)
  Sender: ABBVIE
  Company Number: CA-ABBVIE-6275022

PATIENT
  Age: 86 Year
  Sex: Male

DRUGS (1)
  1. LUPRON [Suspect]
     Active Substance: LEUPROLIDE ACETATE
     Indication: Prostate cancer
     Dosage: FORM STRENGTH: 30 MG?ROA: UNKNOWN?DOSE FORM: POWDER AND SOLVENT FOR SUSPENSION FOR INJECTION IN P...
     Dates: start: 20230413

REACTIONS (8)
  - Pneumonia [Unknown]
  - Muscular weakness [Unknown]
  - Glucose tolerance impaired [Unknown]
  - Prostate cancer recurrent [Not Recovered/Not Resolved]
  - Hypertension [Unknown]
  - Deafness neurosensory [Unknown]
  - Squamous cell carcinoma of skin [Unknown]
  - Gastrooesophageal reflux disease [Recovered/Resolved]

NARRATIVE: CASE EVENT DATE: 20250101
